FAERS Safety Report 16422820 (Version 2)
Quarter: 2019Q3

REPORT INFORMATION
  Report Type: Spontaneous
  Country: US (occurrence: US)
  Receive Date: 20190612
  Receipt Date: 20190806
  Transmission Date: 20191004
  Serious: No
  Sender: FDA-Public Use
  Company Number: US-SA-2019SA158382

PATIENT
  Sex: Male

DRUGS (2)
  1. DUPIXENT [Suspect]
     Active Substance: DUPILUMAB
     Indication: BODY HEIGHT BELOW NORMAL
     Dosage: 300 MG, QOW
     Dates: start: 20190301
  2. DUPIXENT [Suspect]
     Active Substance: DUPILUMAB
     Indication: ENDOCRINE DISORDER

REACTIONS (6)
  - Injection site pain [Unknown]
  - Injection site indentation [Unknown]
  - Injection site haemorrhage [Recovered/Resolved]
  - Injection site swelling [Unknown]
  - Product use in unapproved indication [Unknown]
  - Device use issue [Unknown]
